FAERS Safety Report 7596184 (Version 6)
Quarter: 2013Q2

REPORT INFORMATION
  Report Type: Spontaneous
  Country: US (occurrence: US)
  Receive Date: 20100920
  Receipt Date: 20130507
  Transmission Date: 20140414
  Serious: Yes (Life-Threatening, Hospitalization, Other)
  Sender: FDA-Public Use
  Company Number: US-ASTRAZENECA-2010SE31541

PATIENT
  Age: 75 Year
  Sex: Female
  Weight: 70.3 kg

DRUGS (26)
  1. SEROQUEL [Suspect]
     Indication: SLEEP DISORDER
     Route: 048
     Dates: end: 20100630
  2. SEROQUEL [Suspect]
     Indication: DEPRESSION
     Route: 048
     Dates: end: 20100630
  3. SEROQUEL [Suspect]
     Indication: MAJOR DEPRESSION
     Route: 048
     Dates: end: 20100630
  4. SEROQUEL [Suspect]
     Indication: INSOMNIA
     Route: 048
     Dates: end: 20100630
  5. SEROQUEL [Suspect]
     Indication: SLEEP DISORDER
     Dosage: GENERIC
     Route: 048
  6. SEROQUEL [Suspect]
     Indication: DEPRESSION
     Dosage: GENERIC
     Route: 048
  7. SEROQUEL [Suspect]
     Indication: MAJOR DEPRESSION
     Dosage: GENERIC
     Route: 048
  8. SEROQUEL [Suspect]
     Indication: INSOMNIA
     Dosage: GENERIC
     Route: 048
  9. SEROQUEL [Suspect]
     Indication: SLEEP DISORDER
     Dosage: DAILY
     Route: 048
  10. SEROQUEL [Suspect]
     Indication: DEPRESSION
     Dosage: DAILY
     Route: 048
  11. SEROQUEL [Suspect]
     Indication: MAJOR DEPRESSION
     Dosage: DAILY
     Route: 048
  12. SEROQUEL [Suspect]
     Indication: INSOMNIA
     Dosage: DAILY
     Route: 048
  13. SEROQUEL [Suspect]
     Indication: SLEEP DISORDER
     Route: 048
     Dates: end: 201304
  14. SEROQUEL [Suspect]
     Indication: DEPRESSION
     Route: 048
     Dates: end: 201304
  15. SEROQUEL [Suspect]
     Indication: MAJOR DEPRESSION
     Route: 048
     Dates: end: 201304
  16. SEROQUEL [Suspect]
     Indication: INSOMNIA
     Route: 048
     Dates: end: 201304
  17. METFORMIN [Suspect]
     Indication: DIABETES MELLITUS
     Route: 048
  18. ANTIBIOTICS [Concomitant]
  19. COUMADIN [Concomitant]
  20. LOVASTATIN [Concomitant]
     Indication: BLOOD CHOLESTEROL INCREASED
  21. PHENAZOLPYRIDE [Concomitant]
     Indication: BLADDER DISORDER
     Route: 048
  22. OTHER OTC MEDICATIONS [Concomitant]
  23. TYLENOL [Concomitant]
     Indication: PAIN
     Dosage: PRN
  24. GLYBURIDE [Concomitant]
     Indication: DIABETES MELLITUS
  25. GLYBURIDE [Concomitant]
     Indication: DIABETES MELLITUS
  26. HEART MEDICATION WITH BLOOD PRESSURE [Concomitant]
     Indication: BLOOD PRESSURE ABNORMAL

REACTIONS (37)
  - Procedural complication [Unknown]
  - Pulmonary embolism [Recovered/Resolved]
  - Haemorrhage [Unknown]
  - Cardiac disorder [Recovered/Resolved]
  - Heart rate abnormal [Unknown]
  - Hernia [Recovered/Resolved]
  - Insomnia [Unknown]
  - Nausea [Unknown]
  - Diarrhoea [Unknown]
  - Headache [Unknown]
  - Hallucination, auditory [Unknown]
  - Tachyphrenia [Unknown]
  - Thinking abnormal [Unknown]
  - Body height decreased [Unknown]
  - Grief reaction [Unknown]
  - Nervousness [Unknown]
  - Depression [Unknown]
  - Hypertension [Unknown]
  - Diabetic foot [Unknown]
  - Osteoarthritis [Unknown]
  - Cystitis noninfective [Unknown]
  - Coagulopathy [Unknown]
  - Fungal skin infection [Unknown]
  - Blood glucose decreased [Unknown]
  - Gastric disorder [Unknown]
  - Gastrooesophageal reflux disease [Unknown]
  - Cystitis [Unknown]
  - Feeling abnormal [Unknown]
  - Weight decreased [Unknown]
  - Therapeutic response unexpected [Unknown]
  - Heart rate decreased [Unknown]
  - Weight increased [Unknown]
  - Restless legs syndrome [Unknown]
  - Constipation [Unknown]
  - Off label use [Unknown]
  - Intentional drug misuse [Unknown]
  - Drug ineffective [Unknown]
